FAERS Safety Report 5173279-9 (Version None)
Quarter: 2006Q4

REPORT INFORMATION
  Report Type: 
  Country: None (occurrence: None)
  Receive Date: 20061206
  Receipt Date: 20061128
  Transmission Date: 20070319
  Serious: Yes (Other)
  Sender: FDA-Public Use
  Company Number: 2006SP005895

PATIENT
  Age: 65 Year
  Sex: Male
  Weight: 68.9467 kg

DRUGS (5)
  1. NASONEX [Suspect]
     Indication: MULTIPLE ALLERGIES
     Dosage: 1 DF; QD; INH
     Route: 055
     Dates: start: 20030914, end: 20061107
  2. NORVASC [Concomitant]
  3. ENALAPRIL MALEATE [Concomitant]
  4. TRICOR [Concomitant]
  5. VICODIN [Concomitant]

REACTIONS (4)
  - BRONCHOSPASM [None]
  - DYSPHAGIA [None]
  - OBSTRUCTIVE AIRWAYS DISORDER [None]
  - PHARYNGOLARYNGEAL PAIN [None]
